FAERS Safety Report 9839286 (Version 1)
Quarter: 2014Q1

REPORT INFORMATION
  Report Type: Spontaneous
  Country: US (occurrence: US)
  Receive Date: 20140123
  Receipt Date: 20140123
  Transmission Date: 20141002
  Serious: Yes (Other)
  Sender: FDA-Public Use
  Company Number: PHEH2014US001406

PATIENT
  Sex: Male

DRUGS (2)
  1. EXJADE [Suspect]
     Indication: BLOOD DISORDER
     Dosage: 500 MG, TID
     Route: 048
  2. ANALGESICS [Concomitant]
     Indication: ARTHRALGIA
     Dosage: UNK UKN, UNK

REACTIONS (4)
  - Multi-organ disorder [Unknown]
  - Blood iron increased [Unknown]
  - Malaise [Unknown]
  - Diarrhoea [Unknown]
